APPROVED DRUG PRODUCT: HYDROCODONE BITARTRATE AND ACETAMINOPHEN
Active Ingredient: ACETAMINOPHEN; HYDROCODONE BITARTRATE
Strength: 500MG;10MG
Dosage Form/Route: TABLET;ORAL
Application: A040210 | Product #001
Applicant: UCB INC
Approved: Aug 13, 1997 | RLD: No | RS: No | Type: DISCN